FAERS Safety Report 5958120-6 (Version None)
Quarter: 2008Q4

REPORT INFORMATION
  Report Type: 
  Country: None (occurrence: None)
  Receive Date: 20081119
  Receipt Date: 20081117
  Transmission Date: 20090506
  Serious: Yes (Hospitalization)
  Sender: FDA-Public Use
  Company Number: AU-BRISTOL-MYERS SQUIBB COMPANY-14408652

PATIENT
  Age: 74 Year
  Sex: Female

DRUGS (8)
  1. IRBESARTAN [Suspect]
     Indication: ESSENTIAL HYPERTENSION
     Route: 048
     Dates: end: 20061004
  2. ATENOLOL [Suspect]
     Route: 048
     Dates: end: 20061004
  3. SIMVASTATIN [Suspect]
     Route: 048
     Dates: end: 20061004
  4. LANSOPRAZOLE [Suspect]
     Indication: OESOPHAGEAL DISORDER
     Dosage: FORM: CAPSULE.
     Route: 048
  5. ALLOPURINOL [Suspect]
     Indication: GOUT
     Dosage: FORM: TABLET.
     Route: 048
     Dates: end: 20061004
  6. OXAZEPAM [Suspect]
     Indication: ANXIETY DISORDER
     Dosage: OXAZEPAM TABLET.
     Route: 048
     Dates: end: 20061004
  7. HYDRALAZINE HCL [Suspect]
     Indication: ESSENTIAL HYPERTENSION
     Dosage: HYDRALAZINE HCL TABLET.
     Route: 048
     Dates: end: 20061004
  8. NIFEDIPINE [Suspect]
     Indication: ESSENTIAL HYPERTENSION
     Dosage: NIFEDIPINE TABLET.
     Route: 048
     Dates: end: 20061004

REACTIONS (6)
  - BLOOD CREATINE PHOSPHOKINASE INCREASED [None]
  - HEPATIC ENZYME ABNORMAL [None]
  - MOBILITY DECREASED [None]
  - MUSCULAR WEAKNESS [None]
  - RENAL IMPAIRMENT [None]
  - RHABDOMYOLYSIS [None]
